FAERS Safety Report 5384798-4 (Version None)
Quarter: 2007Q3

REPORT INFORMATION
  Report Type: 
  Country: None (occurrence: None)
  Receive Date: 20070711
  Receipt Date: 20070629
  Transmission Date: 20080115
  Serious: Yes (Congenital Anomaly)
  Sender: FDA-Public Use
  Company Number: US-PFIZER INC-2007055546

PATIENT

DRUGS (1)
  1. SERTRALINE [Suspect]
     Route: 064

REACTIONS (1)
  - NEURAL TUBE DEFECT [None]
